FAERS Safety Report 5634481-2 (Version None)
Quarter: 2008Q1

REPORT INFORMATION
  Report Type: 
  Country: None (occurrence: None)
  Receive Date: 20080220
  Receipt Date: 20080220
  Transmission Date: 20080703
  Serious: No
  Sender: FDA-Public Use
  Company Number: None

PATIENT
  Sex: Female
  Weight: 65.7716 kg

DRUGS (1)
  1. TRASYLOL [Suspect]
     Indication: HEART VALVE REPLACEMENT
     Dates: start: 20060228, end: 20060302

REACTIONS (1)
  - CEREBROVASCULAR ACCIDENT [None]
